FAERS Safety Report 8445038-2 (Version None)
Quarter: 2012Q2

REPORT INFORMATION
  Report Type: 
  Country: None (occurrence: None)
  Receive Date: 20120618
  Receipt Date: 20120604
  Transmission Date: 20120825
  Serious: Yes (Other)
  Sender: FDA-Public Use
  Company Number: US-NOVOPROD-353195

PATIENT
  Age: 68 Year
  Sex: Female
  Weight: 67.574 kg

DRUGS (15)
  1. AMARYL [Suspect]
     Indication: TYPE 2 DIABETES MELLITUS
     Dosage: 1.8 MG, UNK
  2. CALCIUM [Concomitant]
     Dosage: 1500 MG, QD
     Route: 048
     Dates: start: 20060801
  3. FOLIC ACID [Concomitant]
     Dosage: 1 MG, QD
     Route: 048
  4. VICTOZA [Concomitant]
     Dosage: 1.8 MG, QD
     Route: 058
     Dates: start: 20100310, end: 20120514
  5. ZOCOR [Concomitant]
     Dosage: 20 MG, QD
     Route: 048
  6. METFORMIN HCL [Concomitant]
     Dosage: 1000 MG, QD
     Route: 048
     Dates: start: 20120514
  7. CARBOPLATIN [Concomitant]
     Dosage: 505 MG, QD
     Route: 042
     Dates: start: 20120601
  8. LEXAPRO [Concomitant]
     Dosage: 10 MG, QD
     Route: 048
  9. LIRAGLUTIDE [Suspect]
     Indication: TYPE 2 DIABETES MELLITUS
     Dosage: 1.8 MG, QD
     Route: 058
     Dates: start: 20061005, end: 20091209
  10. MICARDIS HCT [Concomitant]
     Dosage: 40/125 MG, QD
     Route: 048
     Dates: start: 20080227
  11. MULTIVITAMIN                       /00097801/ [Concomitant]
     Dosage: UNK
     Route: 048
     Dates: start: 19640101
  12. OMEGA 3                            /01334101/ [Concomitant]
     Dosage: 2 CAPS, QD
     Route: 048
     Dates: start: 20030101
  13. PRILOSEC [Concomitant]
     Dosage: 20 MG, QD
     Route: 048
     Dates: start: 20080201
  14. MIRALAX                            /00754501/ [Concomitant]
     Dosage: 1 TBSP, QD
     Route: 048
  15. ALIMTA [Concomitant]
     Dosage: 840 MG, QD
     Route: 042
     Dates: start: 20120601

REACTIONS (1)
  - LUNG ADENOCARCINOMA METASTATIC [None]
